FAERS Safety Report 14616374 (Version 2)
Quarter: 2018Q1

REPORT INFORMATION
  Report Type: Spontaneous
  Country: US (occurrence: US)
  Receive Date: 20180309
  Receipt Date: 20180314
  Transmission Date: 20180509
  Serious: No
  Sender: FDA-Public Use
  Company Number: US-PFIZER INC-2018098101

PATIENT
  Sex: Male

DRUGS (2)
  1. LIPITOR [Suspect]
     Active Substance: ATORVASTATIN CALCIUM
     Dosage: 20 MG, UNK
  2. LIPITOR [Suspect]
     Active Substance: ATORVASTATIN CALCIUM
     Dosage: 10 MG, UNK

REACTIONS (12)
  - Abdominal pain [Unknown]
  - Malaise [Unknown]
  - Myalgia [Unknown]
  - Pyrexia [Unknown]
  - Thirst [Unknown]
  - Dry mouth [Unknown]
  - Influenza [Unknown]
  - Chromaturia [Unknown]
  - Headache [Unknown]
  - Abdominal discomfort [Unknown]
  - Pain [Unknown]
  - Muscular weakness [Unknown]
